FAERS Safety Report 11054714 (Version 2)
Quarter: 2015Q2

REPORT INFORMATION
  Report Type: Spontaneous
  Country: US (occurrence: US)
  Receive Date: 20150422
  Receipt Date: 20150507
  Transmission Date: 20150821
  Serious: No
  Sender: FDA-Public Use
  Company Number: US-JNJCP-30000277582

PATIENT
  Sex: Female
  Weight: 64 kg

DRUGS (1)
  1. CLEAN AND CLEAR ADVANTAGE ACNE CONTROL 3 IN 1 FOAMING WASH [Suspect]
     Active Substance: SALICYLIC ACID
     Dosage: DIME SIZE AMOUNT TWICE
     Route: 061
     Dates: start: 20150403, end: 20150404

REACTIONS (1)
  - Urticaria [Recovered/Resolved]

NARRATIVE: CASE EVENT DATE: 20150405
